FAERS Safety Report 22174622 (Version 1)
Quarter: 2023Q2

REPORT INFORMATION
  Report Type: Spontaneous
  Country: US (occurrence: US)
  Receive Date: 20230405
  Receipt Date: 20230405
  Transmission Date: 20230721
  Serious: Yes (Disabling, Other)
  Sender: FDA-Public Use
  Company Number: US-REGENERON PHARMACEUTICALS, INC.-2023-049793

PATIENT
  Sex: Female

DRUGS (1)
  1. EYLEA [Suspect]
     Active Substance: AFLIBERCEPT
     Indication: Retinal vein occlusion
     Dosage: UNK, FORMULATION: UNKNOWN, INTO LEFT EYE
     Dates: start: 202205

REACTIONS (4)
  - Blindness unilateral [Not Recovered/Not Resolved]
  - Eye disorder [Unknown]
  - Dry eye [Unknown]
  - Corneal abrasion [Unknown]

NARRATIVE: CASE EVENT DATE: 20230101
